FAERS Safety Report 5597334-4 (Version None)
Quarter: 2007Q4

REPORT INFORMATION
  Report Type: 
  Country: None (occurrence: None)
  Receive Date: 20071221
  Receipt Date: 20070926
  Transmission Date: 20080405
  Serious: Yes (Other)
  Sender: FDA-Public Use
  Company Number: SPV1-2007-03948

PATIENT
  Age: 15 Year
  Sex: Male

DRUGS (4)
  1. VYVANSE [Suspect]
     Indication: ATTENTION DEFICIT/HYPERACTIVITY DISORDER
     Dosage: 50 MG, 1X/DAY.QD. ORAL
     Route: 048
     Dates: start: 20070801, end: 20070822
  2. TRILEPTAL [Concomitant]
  3. ABILIFY [Concomitant]
  4. CLONIDINE [Concomitant]

REACTIONS (5)
  - DYSKINESIA [None]
  - OFF LABEL USE [None]
  - THIRST [None]
  - TONGUE BLISTERING [None]
  - TONGUE DISCOLOURATION [None]
